FAERS Safety Report 11925698 (Version 3)
Quarter: 2016Q2

REPORT INFORMATION
  Report Type: Report from Study
  Country: PH (occurrence: PH)
  Receive Date: 20160118
  Receipt Date: 20160502
  Transmission Date: 20160815
  Serious: Yes (Hospitalization)
  Sender: FDA-Public Use
  Company Number: PHHY2016PH005554

PATIENT
  Age: 46 Year
  Sex: Male

DRUGS (6)
  1. GLIVEC [Suspect]
     Active Substance: IMATINIB MESYLATE
     Dosage: 400 MG, QD
     Route: 065
     Dates: start: 20121216
  2. RIFAMPICIN [Concomitant]
     Active Substance: RIFAMPIN
     Indication: LUNG INFECTION
     Dosage: UNK
     Route: 065
     Dates: end: 201512
  3. GLIVEC [Suspect]
     Active Substance: IMATINIB MESYLATE
     Indication: CHRONIC MYELOID LEUKAEMIA
     Dosage: 300 MG, UNK
     Route: 065
  4. ATORVASTATIN [Concomitant]
     Active Substance: ATORVASTATIN
     Indication: BLOOD CHOLESTEROL
     Route: 065
  5. GLIVEC [Suspect]
     Active Substance: IMATINIB MESYLATE
     Dosage: UNK
     Route: 065
     Dates: start: 20160114
  6. RIFAMPICIN [Concomitant]
     Active Substance: RIFAMPIN
     Indication: PERICARDITIS

REACTIONS (5)
  - Tuberculosis [Unknown]
  - Chest pain [Recovered/Resolved]
  - Blood viscosity increased [Unknown]
  - Pericarditis [Unknown]
  - Chest pain [Recovered/Resolved]

NARRATIVE: CASE EVENT DATE: 20151119
